FAERS Safety Report 17456267 (Version 1)
Quarter: 2020Q1

REPORT INFORMATION
  Report Type: Spontaneous
  Country: US (occurrence: US)
  Receive Date: 20200225
  Receipt Date: 20200225
  Transmission Date: 20200409
  Serious: Yes (Hospitalization)
  Sender: FDA-Public Use
  Company Number: US-ELI_LILLY_AND_COMPANY-US202002007248

PATIENT
  Age: 74 Year
  Sex: Female

DRUGS (12)
  1. VERZENIO [Suspect]
     Active Substance: ABEMACICLIB
     Indication: BREAST CANCER FEMALE
     Dosage: 150 MG, BID
     Route: 048
  2. LISINOPRIL. [Concomitant]
     Active Substance: LISINOPRIL
  3. DIPHENOXYLATE [Concomitant]
     Active Substance: DIPHENOXYLATE
  4. ANASTROZOLE. [Concomitant]
     Active Substance: ANASTROZOLE
  5. ACYCLOVIR [ACICLOVIR] [Concomitant]
     Active Substance: ACYCLOVIR
  6. VITAMIN D [ERGOCALCIFEROL] [Concomitant]
     Active Substance: ERGOCALCIFEROL
  7. CARVEDILOL. [Concomitant]
     Active Substance: CARVEDILOL
  8. GABAPENTIN. [Concomitant]
     Active Substance: GABAPENTIN
  9. DIGOXIN. [Concomitant]
     Active Substance: DIGOXIN
  10. NAPROXEN. [Concomitant]
     Active Substance: NAPROXEN
  11. ATORVASTATIN [Concomitant]
     Active Substance: ATORVASTATIN
  12. ASPIRIN KENT [ACETYLSALICYLIC ACID] [Concomitant]

REACTIONS (3)
  - Full blood count decreased [Unknown]
  - Weight decreased [Unknown]
  - Diarrhoea [Unknown]
